FAERS Safety Report 4343844-7 (Version None)
Quarter: 2004Q2

REPORT INFORMATION
  Report Type: 
  Country: None (occurrence: None)
  Receive Date: 20040419
  Receipt Date: 20040405
  Transmission Date: 20050107
  Serious: Yes (Other)
  Sender: FDA-Public Use
  Company Number: US-JNJFOC-20040400761

PATIENT
  Age: 74 Year
  Sex: Female
  Weight: 83.9154 kg

DRUGS (15)
  1. INFLIXIMAB (INFLIXIMAB, RECOMBINANT) LYOPHILIZED POWDER [Suspect]
     Indication: RHEUMATOID ARTHRITIS
     Dosage: INTRAVENOUS
     Route: 042
     Dates: start: 20011025
  2. HYDROCHLOROTHIAZIDE [Concomitant]
  3. LIPITOR [Concomitant]
  4. PROTONIX [Concomitant]
  5. ZOLOFT [Concomitant]
  6. NABUMETONE [Concomitant]
  7. LOTREL (LOTREL) [Concomitant]
  8. METHOTREXATE [Concomitant]
  9. FOLIC ACID [Concomitant]
  10. MULTIVITAMIN [Concomitant]
  11. CALTRATE (CALCIUM CARBONATE) [Concomitant]
  12. GLUCOSAMINE/CHONDROITIN (GLUCOSAMINE W/CHONDROITIN SULFATES) [Concomitant]
  13. FOSAMAX [Concomitant]
  14. ESTER-C (CALCIUM ASCORBATE) [Concomitant]
  15. BETA-CAROTENE (BETACAROTENE) [Concomitant]

REACTIONS (1)
  - SKIN CANCER [None]
